FAERS Safety Report 18634100 (Version 1)
Quarter: 2020Q4

REPORT INFORMATION
  Report Type: Spontaneous
  Country: FR (occurrence: FR)
  Receive Date: 20201218
  Receipt Date: 20201218
  Transmission Date: 20210114
  Serious: Yes (Life-Threatening, Hospitalization, Other)
  Sender: FDA-Public Use
  Company Number: FR-PFIZER INC-2020495247

PATIENT
  Age: 77 Year
  Sex: Male
  Weight: 89 kg

DRUGS (2)
  1. DIFICLIR [Suspect]
     Active Substance: FIDAXOMICIN
     Indication: LARGE INTESTINE INFECTION
     Dosage: 1 DF
     Route: 048
     Dates: start: 20201123, end: 20201130
  2. TAZOCILLINE [Suspect]
     Active Substance: PIPERACILLIN SODIUM\TAZOBACTAM SODIUM
     Indication: LARGE INTESTINE INFECTION
     Dosage: 16 G
     Route: 042
     Dates: start: 20201122, end: 20201129

REACTIONS (1)
  - Tonic clonic movements [Not Recovered/Not Resolved]

NARRATIVE: CASE EVENT DATE: 20201126
